FAERS Safety Report 19478768 (Version 1)
Quarter: 2021Q2

REPORT INFORMATION
  Report Type: Spontaneous
  Country: IN (occurrence: IN)
  Receive Date: 20210630
  Receipt Date: 20210630
  Transmission Date: 20210717
  Serious: Yes (Other)
  Sender: FDA-Public Use
  Company Number: IN-PFIZER INC-2021087097

PATIENT
  Age: 54 Year
  Sex: Female

DRUGS (7)
  1. LETROZOLE. [Concomitant]
     Active Substance: LETROZOLE
     Dosage: 2.5 MG, 1X/DAY
  2. PALBACE [Suspect]
     Active Substance: PALBOCICLIB
     Indication: BREAST CANCER METASTATIC
     Dosage: 125 MG, 1X/DAY
     Route: 048
     Dates: start: 20201126
  3. POLYBION [VITAMINS NOS] [Concomitant]
     Dosage: 10 ML, 2X/DAY
  4. MAGNORATE [Concomitant]
     Dosage: 1 TAB, 2X/DAY
  5. FILGRASTIM [Concomitant]
     Active Substance: FILGRASTIM
     Dosage: 300 MG, SC SOS IF TLC LESS THAN 4000
     Route: 058
  6. PALBACE [Suspect]
     Active Substance: PALBOCICLIB
     Dosage: 100 MG
     Route: 048
  7. LIVOGEN [ASCORBIC ACID;FERROUS FUMARATE;FOLIC ACID;LIVER EXTRACT;VITAM [Concomitant]
     Dosage: 1 TAB, 2X/DAY

REACTIONS (6)
  - Asthenia [Unknown]
  - Blood magnesium decreased [Unknown]
  - White blood cell count decreased [Unknown]
  - Blood pressure decreased [Unknown]
  - Haemorrhage [Unknown]
  - Haemoglobin decreased [Unknown]

NARRATIVE: CASE EVENT DATE: 20210210
